FAERS Safety Report 8523688-2 (Version None)
Quarter: 2012Q3

REPORT INFORMATION
  Report Type: 
  Country: None (occurrence: None)
  Receive Date: 20120720
  Receipt Date: 20120709
  Transmission Date: 20120928
  Serious: Yes (Hospitalization)
  Sender: FDA-Public Use
  Company Number: JP-AMGEN-JPNCT2012044817

PATIENT
  Age: 74 Year
  Sex: Male
  Weight: 53 kg

DRUGS (13)
  1. ALFAROL [Concomitant]
     Dosage: UNCERTAINTY
     Route: 048
  2. INDAPAMIDE [Concomitant]
     Indication: GLOMERULONEPHRITIS CHRONIC
     Dosage: UNCERTAINTY
     Route: 048
  3. LASIX [Concomitant]
     Indication: GLOMERULONEPHRITIS CHRONIC
     Dosage: UNCERTAINTY
     Route: 048
  4. CONIEL [Concomitant]
     Dosage: UNCERTAINTY
     Route: 048
  5. ENALAPRIL MALEATE [Concomitant]
     Dosage: UNCERTAINTY
     Route: 048
  6. AMLODIPINE [Concomitant]
     Dosage: UNCERTAINTY
     Route: 048
  7. ADALAT [Concomitant]
     Dosage: UNCERTAINTY
     Route: 048
  8. DARBEPOETIN ALFA - KHK [Suspect]
     Indication: NEPHROGENIC ANAEMIA
     Dosage: 30 MUG, Q2WK
     Route: 058
     Dates: start: 20110623, end: 20111208
  9. ARGAMATE [Concomitant]
     Dosage: UNCERTAINTY
     Route: 048
  10. SODIUM BICARBONATE [Concomitant]
     Dosage: UNCERTAINTY
     Route: 048
  11. CANDESARTAN CILEXETIL [Concomitant]
     Dosage: UNCERTAINTY
     Route: 048
  12. KREMEZIN [Concomitant]
     Indication: GLOMERULONEPHRITIS CHRONIC
     Dosage: UNCERTAINTY
     Route: 048
  13. ADALAT CC [Concomitant]
     Dosage: UNCERTAINTY
     Route: 048

REACTIONS (2)
  - CARDIAC FAILURE ACUTE [None]
  - MYOCARDIAL ISCHAEMIA [None]
